FAERS Safety Report 5842691-4 (Version None)
Quarter: 2008Q3

REPORT INFORMATION
  Report Type: 
  Country: None (occurrence: None)
  Receive Date: 20080812
  Receipt Date: 20080731
  Transmission Date: 20090109
  Serious: Yes (Hospitalization)
  Sender: FDA-Public Use
  Company Number: JP-AMGEN-US295626

PATIENT
  Sex: Female
  Weight: 54 kg

DRUGS (10)
  1. ENBREL [Suspect]
     Indication: RHEUMATOID ARTHRITIS
     Route: 058
     Dates: start: 20050914, end: 20080115
  2. ENBREL [Suspect]
     Route: 058
     Dates: start: 20080116
  3. PROGRAF [Concomitant]
     Indication: RHEUMATOID ARTHRITIS
     Route: 048
     Dates: start: 20070709
  4. CYTOTEC [Concomitant]
     Indication: PROPHYLAXIS
     Route: 048
  5. FOLIAMIN [Concomitant]
     Indication: PROPHYLAXIS
     Route: 048
  6. BONALON [Concomitant]
     Indication: PROPHYLAXIS
     Route: 048
  7. METHOTREXATE [Concomitant]
     Indication: RHEUMATOID ARTHRITIS
     Dosage: CAPSULE, 6 MG ONCE WEEKLY
     Route: 048
     Dates: start: 20011205
  8. METHOTREXATE [Concomitant]
     Dosage: CAPSULE, 8 MG ONCE WEEKLY
     Route: 048
  9. METHOTREXATE [Concomitant]
     Dosage: TABLET, 5 MG ONCE WEEKLY
     Route: 048
  10. MOBIC [Concomitant]
     Indication: RHEUMATOID ARTHRITIS
     Route: 048

REACTIONS (1)
  - INTERVERTEBRAL DISCITIS [None]
